FAERS Safety Report 10524144 (Version 1)
Quarter: 2014Q4

REPORT INFORMATION
  Report Type: Spontaneous
  Country: US (occurrence: None)
  Receive Date: 20141015
  Receipt Date: 20141015
  Transmission Date: 20150528
  Serious: Yes (Hospitalization)
  Sender: FDA-Public Use
  Company Number: None

PATIENT
  Age: 15 Year
  Sex: Female
  Weight: 91.8 kg

DRUGS (1)
  1. ZARAH [Suspect]
     Active Substance: DROSPIRENONE\ETHINYL ESTRADIOL
     Indication: ORAL CONTRACEPTION
     Dosage: 1 TABLET
     Route: 048

REACTIONS (6)
  - Back pain [None]
  - Pain in extremity [None]
  - Deep vein thrombosis [None]
  - Abdominal pain lower [None]
  - Pyrexia [None]
  - Vena cava thrombosis [None]

NARRATIVE: CASE EVENT DATE: 20140929
